FAERS Safety Report 9477443 (Version 1)
Quarter: 2013Q3

REPORT INFORMATION
  Report Type: Spontaneous
  Country: US (occurrence: US)
  Receive Date: 20130826
  Receipt Date: 20130826
  Transmission Date: 20140515
  Serious: No
  Sender: FDA-Public Use
  Company Number: US-009507513-1308USA007144

PATIENT
  Age: 21 Year
  Sex: Female
  Weight: 75.74 kg

DRUGS (4)
  1. NEXPLANON [Suspect]
     Indication: CONTRACEPTION
     Dosage: 1 ROD
     Route: 059
     Dates: start: 20130813
  2. SYNTHROID [Concomitant]
  3. ADDERALL TABLETS [Concomitant]
  4. XANAX [Concomitant]

REACTIONS (6)
  - Erythema [Not Recovered/Not Resolved]
  - Implant site rash [Not Recovered/Not Resolved]
  - Local swelling [Not Recovered/Not Resolved]
  - Implant site swelling [Not Recovered/Not Resolved]
  - Rash [Not Recovered/Not Resolved]
  - Implant site erythema [Not Recovered/Not Resolved]
